FAERS Safety Report 17561266 (Version 2)
Quarter: 2020Q2

REPORT INFORMATION
  Report Type: Spontaneous
  Country: US (occurrence: US)
  Receive Date: 20200319
  Receipt Date: 20200622
  Transmission Date: 20200713
  Serious: No
  Sender: FDA-Public Use
  Company Number: US-SHIRE-US202010577

PATIENT
  Age: 33 Year

DRUGS (1)
  1. ADVATE [Suspect]
     Active Substance: ANTIHEMOPHILIC FACTOR, HUMAN RECOMBINANT
     Indication: PRODUCT USED FOR UNKNOWN INDICATION
     Dosage: 4000 INTERNATIONAL UNIT, AS REQ^D
     Route: 042

REACTIONS (2)
  - Joint injury [Recovered/Resolved]
  - Injury [Recovered/Resolved]

NARRATIVE: CASE EVENT DATE: 20200613
